FAERS Safety Report 18270503 (Version 1)
Quarter: 2020Q3

REPORT INFORMATION
  Report Type: Spontaneous
  Country: GB (occurrence: GB)
  Receive Date: 20200915
  Receipt Date: 20200915
  Transmission Date: 20201103
  Serious: Yes (Hospitalization)
  Sender: FDA-Public Use
  Company Number: GB-JNJFOC-20200716165

PATIENT
  Age: 59 Year
  Sex: Female
  Weight: 96.8 kg

DRUGS (21)
  1. FEXOFENADINE HYDROCHLORIDE. [Concomitant]
     Active Substance: FEXOFENADINE HYDROCHLORIDE
     Route: 065
  2. METHOTREXATE. [Concomitant]
     Active Substance: METHOTREXATE
     Dosage: 20MG/0.4ML
     Route: 065
  3. BISACODYL. [Concomitant]
     Active Substance: BISACODYL
     Dosage: 5 MG ONE/TWO TABLETS AT NIGHT
     Route: 065
  4. GAVISCON                           /00237601/ [Concomitant]
     Active Substance: ALUMINUM HYDROXIDE\MAGNESIUM CARBONATE
     Dosage: ONE/TWO AFTER MEALS AND AT BEDTIME
     Route: 065
  5. NAPROXEN. [Concomitant]
     Active Substance: NAPROXEN
     Dosage: 500 MG ONE TO BE TAKEN TWICE A DAY
     Route: 065
  6. SIMPONI [Suspect]
     Active Substance: GOLIMUMAB
     Indication: RHEUMATOID ARTHRITIS
     Route: 030
     Dates: start: 20180414
  7. COLECALCIFEROL [Concomitant]
     Active Substance: CHOLECALCIFEROL
     Dosage: 800 UNITS
     Route: 065
  8. QUININE [Concomitant]
     Active Substance: QUININE
     Dosage: 200MG ONE TO BE TAKEN AT NIGHT
     Route: 065
  9. SUNSENSE                           /01093901/ [Concomitant]
     Dosage: 50+
     Route: 065
  10. KETOPROFEN. [Concomitant]
     Active Substance: KETOPROFEN
     Dosage: 2.5% TWICE A DAY
     Route: 065
  11. GABAPENTIN. [Concomitant]
     Active Substance: GABAPENTIN
     Dosage: 300MG 4 CAPS 3 TIMES A DAY
     Route: 065
  12. ACICLOVIR [Concomitant]
     Active Substance: ACYCLOVIR
     Dosage: 50% APPLY TO LESIONS 5 TIMES A DAY AT FIRST SIGN OF ATTACK FOR 5 DAYS AS DIRECTED 2 GRAM
     Route: 065
  13. LANSOPRAZOLE. [Concomitant]
     Active Substance: LANSOPRAZOLE
  14. SIMPONI [Suspect]
     Active Substance: GOLIMUMAB
     Route: 030
     Dates: start: 20200731
  15. AMITRIPTYLINE HYDROCHLORIDE. [Concomitant]
     Active Substance: AMITRIPTYLINE HYDROCHLORIDE
     Dosage: 10MG ONE TO BE TAKEN AT NIGHT FOR 7 DAYS THEN INCREASE TO TWO TABLETS AT NIGHT
     Route: 065
  16. PARACETAMOL [Concomitant]
     Active Substance: ACETAMINOPHEN
     Dosage: 500MG 2 TABS 4 TIMES DAILY AS?REQUIRED
     Route: 065
  17. HYDROXOCOBALAMIN [Concomitant]
     Active Substance: HYDROXOCOBALAMIN
     Dosage: 1MG/1ML
     Route: 065
  18. FOLIC ACID. [Concomitant]
     Active Substance: FOLIC ACID
     Dosage: 5 MG 1 TAB 6 DAYS PER WEEK
     Route: 065
  19. AVEENO [Concomitant]
     Active Substance: DIMETHICONE\HOMOSALATE\OCTINOXATE\OCTISALATE\TITANIUM DIOXIDE
     Dosage: APPLY WHEN REQUIRED FOR DRY SKIN
     Route: 065
  20. DIHYDROCODEINE [Concomitant]
     Active Substance: DIHYDROCODEINE
     Dosage: 30MG TWO TABS AT NIGHT
     Route: 065
  21. SOLPADOL                           /00116401/ [Concomitant]
     Active Substance: ACETAMINOPHEN\CODEINE PHOSPHATE
     Dosage: 30MG/500MG 2 TABS QID PRN
     Route: 065

REACTIONS (3)
  - Gastroenteritis salmonella [Recovered/Resolved]
  - Cough [Unknown]
  - Gastrointestinal wall thickening [Unknown]

NARRATIVE: CASE EVENT DATE: 2020
